FAERS Safety Report 4476456-5 (Version None)
Quarter: 2004Q4

REPORT INFORMATION
  Report Type: 
  Country: None (occurrence: None)
  Receive Date: 20041012
  Receipt Date: 20040930
  Transmission Date: 20050328
  Serious: Yes (Other)
  Sender: FDA-Public Use
  Company Number: 209399

PATIENT
  Age: 58 Year
  Sex: Female

DRUGS (11)
  1. XOLAIR [Suspect]
     Indication: CHRONIC OBSTRUCTIVE AIRWAYS DISEASE
     Dosage: 225 MG , Q2W, SUBCUTANEOUS
     Route: 058
     Dates: start: 20040618, end: 20040903
  2. KEFLEX [Concomitant]
  3. DITROPAN [Concomitant]
  4. NASONEX [Concomitant]
  5. FOSAMAX [Concomitant]
  6. CELEBREX [Concomitant]
  7. LIPITOR [Concomitant]
  8. SINGULAIR [Concomitant]
  9. AMBIEN [Concomitant]
  10. PAXIL [Concomitant]
  11. LAMISIL [Concomitant]

REACTIONS (2)
  - ARTHRALGIA [None]
  - ARTHRITIS [None]
